FAERS Safety Report 11200721 (Version 1)
Quarter: 2015Q2

REPORT INFORMATION
  Report Type: Spontaneous
  Country: SE (occurrence: SE)
  Receive Date: 20150618
  Receipt Date: 20150618
  Transmission Date: 20150821
  Serious: Yes (Hospitalization, Other)
  Sender: FDA-Public Use
  Company Number: PHHY2015SE070521

PATIENT
  Age: 60 Year
  Sex: Male

DRUGS (6)
  1. METHYLPREDNISOLONE. [Suspect]
     Active Substance: METHYLPREDNISOLONE
     Indication: DEMYELINATING POLYNEUROPATHY
     Route: 065
  2. IMMUNOGLOBULIN G HUMAN [Suspect]
     Active Substance: HUMAN IMMUNOGLOBULIN G
     Indication: DEMYELINATING POLYNEUROPATHY
     Dosage: UNK
     Route: 065
     Dates: start: 200912
  3. PREDNISOLONE. [Suspect]
     Active Substance: PREDNISOLONE
     Indication: DEMYELINATING POLYNEUROPATHY
     Route: 048
  4. ALEMTUZUMAB [Suspect]
     Active Substance: ALEMTUZUMAB
     Indication: DEMYELINATING POLYNEUROPATHY
     Dosage: 60 MG, UNK
     Route: 065
     Dates: start: 200912
  5. AZATHIOPRINE. [Suspect]
     Active Substance: AZATHIOPRINE
     Indication: DEMYELINATING POLYNEUROPATHY
     Dosage: 2 UNK, UNK
     Route: 048
     Dates: start: 200912
  6. CYCLOPHOSPHAMIDE. [Suspect]
     Active Substance: CYCLOPHOSPHAMIDE
     Indication: DEMYELINATING POLYNEUROPATHY
     Dosage: UNK
     Route: 065
     Dates: start: 200912

REACTIONS (4)
  - Neutropenia [Unknown]
  - Drug resistance [Unknown]
  - Escherichia bacteraemia [Unknown]
  - Cystitis haemorrhagic [Unknown]
